FAERS Safety Report 6732489-7 (Version None)
Quarter: 2010Q2

REPORT INFORMATION
  Report Type: 
  Country: None (occurrence: None)
  Receive Date: 20100519
  Receipt Date: 20100507
  Transmission Date: 20101027
  Serious: Yes (Life-Threatening)
  Sender: FDA-Public Use
  Company Number: FR-PFIZER INC-2010057787

PATIENT
  Age: 86 Year
  Sex: Female

DRUGS (11)
  1. NEURONTIN [Suspect]
     Indication: NEURALGIA
     Dosage: 300 MG, 2X/DAY
     Route: 048
     Dates: start: 20090811
  2. ARIXTRA [Suspect]
     Indication: THROMBOSIS PROPHYLAXIS
     Dosage: 7.5 MG, 1X/DAY
     Route: 058
     Dates: start: 20091019, end: 20091023
  3. KARDEGIC [Suspect]
     Indication: CEREBROVASCULAR ACCIDENT PROPHYLAXIS
     Dosage: 160 MG, 1 DF, 1X/DAY
     Route: 048
     Dates: start: 20081106, end: 20091027
  4. CITALOPRAM [Suspect]
     Indication: DEPRESSION
     Dosage: 20 MG, 1X/DAY
     Route: 048
     Dates: start: 20081106, end: 20091027
  5. TAHOR [Concomitant]
     Dosage: UNK
     Dates: end: 20091027
  6. COVERSYL [Concomitant]
     Indication: CEREBROVASCULAR ACCIDENT PROPHYLAXIS
     Dosage: 4 MG, 1X/DAY
     Route: 048
     Dates: start: 20081106
  7. LASIX [Concomitant]
     Indication: HYPERTENSION
     Dosage: 20 MG, 2X/DAY
     Route: 048
  8. SPECIAFOLDINE [Concomitant]
     Indication: ANAEMIA
  9. NITRODERM [Concomitant]
     Indication: ANGINA PECTORIS
  10. MOPRAL [Concomitant]
     Dosage: 20 MG
  11. SOLUPRED [Concomitant]
     Dosage: 40 MG, 1X/DAY

REACTIONS (2)
  - ANAEMIA [None]
  - MUSCLE HAEMORRHAGE [None]
